FAERS Safety Report 7481124-1 (Version None)
Quarter: 2011Q2

REPORT INFORMATION
  Report Type: 
  Country: None (occurrence: None)
  Receive Date: 20110516
  Receipt Date: 20110502
  Transmission Date: 20111010
  Serious: Yes (Hospitalization, Other)
  Sender: FDA-Public Use
  Company Number: US-ELI_LILLY_AND_COMPANY-US200909001910

PATIENT
  Sex: Female

DRUGS (7)
  1. FORTEO [Suspect]
     Dosage: 20 UG, DAILY (1/D)
  2. CITALOPRAM HYDROBROMIDE [Concomitant]
  3. FORTEO [Suspect]
     Dosage: 20 UG, DAILY (1/D)
  4. FORTEO [Suspect]
     Dosage: 20 UG, DAILY (1/D)
  5. ASPIRIN [Concomitant]
  6. FORTEO [Suspect]
     Indication: OSTEOPOROSIS
     Dosage: 20 UG, DAILY (1/D)
     Dates: start: 20090603
  7. VITAMINS NOS [Concomitant]

REACTIONS (7)
  - GAIT DISTURBANCE [None]
  - ASTHENIA [None]
  - FATIGUE [None]
  - BACK PAIN [None]
  - OSTEOARTHRITIS [None]
  - DYSSTASIA [None]
  - DIZZINESS [None]
